FAERS Safety Report 6468412-2 (Version None)
Quarter: 2009Q4

REPORT INFORMATION
  Report Type: 
  Country: None (occurrence: None)
  Receive Date: 20091203
  Receipt Date: 20091123
  Transmission Date: 20100525
  Serious: Yes (Hospitalization)
  Sender: FDA-Public Use
  Company Number: US-BIOGENIDEC-2009BI034659

PATIENT
  Age: 61 Year
  Sex: Female

DRUGS (7)
  1. AVONEX [Suspect]
     Indication: MULTIPLE SCLEROSIS
     Route: 030
     Dates: start: 20060626
  2. MEDICINES [NOS] [Concomitant]
  3. TYLENOL (CAPLET) [Concomitant]
  4. ADVIL [Concomitant]
  5. BACLOFEN [Concomitant]
  6. ZANAFLEX [Concomitant]
  7. METHYLPHENIDATE HCL [Concomitant]

REACTIONS (6)
  - BLOOD POTASSIUM DECREASED [None]
  - CONFUSIONAL STATE [None]
  - HALLUCINATION [None]
  - INFECTION [None]
  - MEDICATION ERROR [None]
  - MULTIPLE DRUG OVERDOSE [None]
